FAERS Safety Report 7767132-1 (Version None)
Quarter: 2011Q3

REPORT INFORMATION
  Report Type: 
  Country: None (occurrence: None)
  Receive Date: 20110922
  Receipt Date: 20110602
  Transmission Date: 20111222
  Serious: No
  Sender: FDA-Public Use
  Company Number: US-ASTRAZENECA-2011SE34162

PATIENT
  Age: 69 Year
  Sex: Male
  Weight: 123.8 kg

DRUGS (8)
  1. LITHIUM CARBONATE [Concomitant]
  2. CITALOPRAM HYDROBROMIDE [Concomitant]
  3. GLIPIZIDE [Concomitant]
  4. SEROQUEL XR [Suspect]
     Indication: BIPOLAR DISORDER
     Route: 048
     Dates: start: 20090101
  5. LEVOTHYROXINE SODIUM [Concomitant]
  6. LISINOPRIL [Concomitant]
  7. METFORMIN HCL [Concomitant]
  8. FENOFIBRATE [Concomitant]

REACTIONS (2)
  - DRUG DOSE OMISSION [None]
  - INSOMNIA [None]
